FAERS Safety Report 4380823-8 (Version None)
Quarter: 2004Q2

REPORT INFORMATION
  Report Type: 
  Country: None (occurrence: None)
  Receive Date: 20040616
  Receipt Date: 20040603
  Transmission Date: 20050107
  Serious: Yes (Hospitalization, Other)
  Sender: FDA-Public Use
  Company Number: 237243

PATIENT
  Sex: Male
  Weight: 4.3 kg

DRUGS (1)
  1. ACTRAPID PENFIL HM(GE) 3 ML(ACTRAPID PENFIL HM(GE) 3 ML(INSULIN HUMAN) [Suspect]
     Indication: DIABETES MELLITUS
     Dosage: INTRAUTERINE
     Route: 015

REACTIONS (2)
  - DRUG EXPOSURE DURING PREGNANCY [None]
  - HYPOGLYCAEMIA NEONATAL [None]
